FAERS Safety Report 5497838-9 (Version None)
Quarter: 2007Q4

REPORT INFORMATION
  Report Type: 
  Country: None (occurrence: None)
  Receive Date: 20071025
  Receipt Date: 20070618
  Transmission Date: 20080405
  Serious: Yes (Disabling)
  Sender: FDA-Public Use
  Company Number: A0642221A

PATIENT
  Age: 92 Year
  Sex: Male

DRUGS (11)
  1. ADVAIR DISKUS 100/50 [Suspect]
     Indication: DRUG USE FOR UNKNOWN INDICATION
     Dosage: 1PUFF TWICE PER DAY
     Route: 055
     Dates: start: 20061215
  2. SINGULAIR [Concomitant]
  3. SPIRIVA [Concomitant]
  4. VERAPAMIL [Concomitant]
  5. THEOPHYLLINE [Concomitant]
  6. TORSEMIDE [Concomitant]
  7. LUNESTA [Concomitant]
  8. PAXIL [Concomitant]
  9. COMBIVENT [Concomitant]
  10. MEGESTROL ACETATE [Concomitant]
  11. PREVACID [Concomitant]

REACTIONS (2)
  - DRUG INEFFECTIVE [None]
  - PHARMACEUTICAL PRODUCT COMPLAINT [None]
